FAERS Safety Report 6702825-6 (Version None)
Quarter: 2010Q2

REPORT INFORMATION
  Report Type: 
  Country: None (occurrence: None)
  Receive Date: 20100429
  Receipt Date: 20100429
  Transmission Date: 20101027
  Serious: Yes (Life-Threatening, Hospitalization, Disabling, Other)
  Sender: FDA-Public Use
  Company Number: None

PATIENT
  Age: 39 Year
  Sex: Female

DRUGS (2)
  1. FENTANYL [Suspect]
     Indication: BACK PAIN
     Dosage: 25 MCG Q72H TRANSDERMAL
     Route: 062
  2. OXYCODONE HCL AND ACETAMINOPHEN [Suspect]
     Indication: BACK PAIN
     Dosage: 5/325 PRN PAIN PO
     Route: 048

REACTIONS (11)
  - ACIDOSIS [None]
  - ACUTE PULMONARY OEDEMA [None]
  - ACUTE RESPIRATORY FAILURE [None]
  - ANXIETY [None]
  - DRUG ABUSE [None]
  - DRUG DEPENDENCE [None]
  - HAEMOPTYSIS [None]
  - OVERDOSE [None]
  - PAIN [None]
  - POISONING [None]
  - UNRESPONSIVE TO STIMULI [None]
